APPROVED DRUG PRODUCT: HYDROXYZINE HYDROCHLORIDE
Active Ingredient: HYDROXYZINE HYDROCHLORIDE
Strength: 10MG/5ML
Dosage Form/Route: SYRUP;ORAL
Application: A087294 | Product #001 | TE Code: AA
Applicant: CHARTWELL RX SCIENCES LLC
Approved: Apr 12, 1982 | RLD: Yes | RS: Yes | Type: RX